FAERS Safety Report 7231986-8 (Version None)
Quarter: 2011Q1

REPORT INFORMATION
  Report Type: 
  Country: None (occurrence: None)
  Receive Date: 20110118
  Receipt Date: 20110112
  Transmission Date: 20110831
  Serious: Yes (Death, Other)
  Sender: FDA-Public Use
  Company Number: US-ASTRAZENECA-2011SE02031

PATIENT
  Age: 12081 Day
  Sex: Male
  Weight: 111.6 kg

DRUGS (2)
  1. XANAX [Concomitant]
  2. SEROQUEL XR [Suspect]
     Indication: BIPOLAR DISORDER
     Route: 048

REACTIONS (3)
  - HAEMORRHAGE [None]
  - OVERDOSE [None]
  - WEIGHT INCREASED [None]
